FAERS Safety Report 5721511-2 (Version None)
Quarter: 2008Q2

REPORT INFORMATION
  Report Type: 
  Country: None (occurrence: None)
  Receive Date: 20080424
  Receipt Date: 20080409
  Transmission Date: 20081010
  Serious: Yes (Disabling)
  Sender: FDA-Public Use
  Company Number: 2008S1005971

PATIENT
  Age: 75 Year
  Sex: Female
  Weight: 58.2 kg

DRUGS (3)
  1. CIPROFLOXACIN [Suspect]
     Indication: URINARY TRACT INFECTION
     Dosage: 500 MG; ; ORAL
     Route: 048
     Dates: start: 20080310, end: 20080315
  2. GAVISCON [Concomitant]
  3. SYMBICORT [Concomitant]

REACTIONS (1)
  - TENOSYNOVITIS [None]
